FAERS Safety Report 8103415-3 (Version None)
Quarter: 2012Q1

REPORT INFORMATION
  Report Type: 
  Country: None (occurrence: None)
  Receive Date: 20120130
  Receipt Date: 20120117
  Transmission Date: 20120608
  Serious: Yes (Hospitalization, Other)
  Sender: FDA-Public Use
  Company Number: AU-UCBSA-036473

PATIENT
  Age: 17 Year
  Sex: Female

DRUGS (3)
  1. KEPPRA [Interacting]
     Route: 048
     Dates: start: 20110601, end: 20110701
  2. MAGNESIUM SUPPLEMENT [Interacting]
     Indication: SUPPLEMENTATION THERAPY
     Dates: end: 20110601
  3. KEPPRA [Suspect]
     Indication: EPILEPSY
     Route: 048
     Dates: start: 20100101, end: 20110601

REACTIONS (3)
  - DRUG INTERACTION [None]
  - CONVULSION [None]
  - FALL [None]
